FAERS Safety Report 10699711 (Version 2)
Quarter: 2014Q4

REPORT INFORMATION
  Report Type: Spontaneous
  Country: US (occurrence: None)
  Receive Date: 20141209
  Receipt Date: 20141222
  Transmission Date: 20150529
  Serious: No
  Sender: FDA-Public Use
  Company Number: US-145596

PATIENT
  Age: 55 Year
  Sex: Male
  Weight: 62.6 kg

DRUGS (1)
  1. BOTULISM ANTITOXIN [Suspect]
     Active Substance: BOTULISM ANTITOXIN
     Indication: BOTULISM
     Dates: start: 20141127, end: 20141127

REACTIONS (5)
  - Infusion related reaction [None]
  - Rash [None]
  - Serum sickness [None]
  - Pyrexia [None]
  - Rash macular [None]

NARRATIVE: CASE EVENT DATE: 20141127
